FAERS Safety Report 22588781 (Version 1)
Quarter: 2023Q2

REPORT INFORMATION
  Report Type: Spontaneous
  Country: US (occurrence: US)
  Receive Date: 20230612
  Receipt Date: 20230612
  Transmission Date: 20230722
  Serious: Yes (Hospitalization, Other)
  Sender: FDA-Public Use
  Company Number: US-BAYER-2023A077980

PATIENT
  Age: 61 Year
  Sex: Male
  Weight: 107.03 kg

DRUGS (4)
  1. BAYER LOW DOSE [Suspect]
     Active Substance: ASPIRIN
     Indication: Prophylaxis
  2. FERROUS SULFATE [Concomitant]
     Active Substance: FERROUS SULFATE
     Dosage: UNK
     Dates: start: 20230303
  3. RITONAVIR [Concomitant]
     Active Substance: RITONAVIR
     Indication: COVID-19
  4. LISINOPRIL [Suspect]
     Active Substance: LISINOPRIL
     Dosage: UNK
     Dates: start: 20150809

REACTIONS (2)
  - Anaemia [Unknown]
  - Gastrointestinal haemorrhage [None]
